FAERS Safety Report 9214974 (Version 1)
Quarter: 2013Q2

REPORT INFORMATION
  Report Type: Spontaneous
  Country: DE (occurrence: DE)
  Receive Date: 20130405
  Receipt Date: 20130405
  Transmission Date: 20140414
  Serious: Yes (Other)
  Sender: FDA-Public Use
  Company Number: PHHY2013DE032702

PATIENT
  Age: 71 Year
  Sex: Female

DRUGS (2)
  1. PERINDOPRIL [Suspect]
  2. ACETYLSALICYLIC ACID [Suspect]

REACTIONS (5)
  - Speech disorder [Recovering/Resolving]
  - Angioedema [Recovered/Resolved]
  - Periorbital oedema [Recovered/Resolved]
  - Dyspnoea [Recovered/Resolved]
  - Cough [Recovered/Resolved]
